FAERS Safety Report 4832086-4 (Version None)
Quarter: 2005Q4

REPORT INFORMATION
  Report Type: 
  Country: None (occurrence: None)
  Receive Date: 20051116
  Receipt Date: 20051108
  Transmission Date: 20060501
  Serious: Yes (Hospitalization)
  Sender: FDA-Public Use
  Company Number: CHPA2005US05188

PATIENT
  Age: 77 Year
  Sex: Female

DRUGS (5)
  1. EX-LAX MILK OF MAGNESIA RASPBERRY (NCH) (MAGNESIUM HYDROXIDE, SIMETHIC [Suspect]
     Indication: ABDOMINAL PAIN UPPER
     Dosage: 7.5 TSP, Q96H, ORAL
     Route: 048
     Dates: start: 20011001
  2. VALIUM [Concomitant]
  3. ASPIRIN [Concomitant]
  4. ZINC (ZINC) [Concomitant]
  5. INFLUENZA VACCINE (INFLUENZA VACCINE) [Concomitant]

REACTIONS (10)
  - BALANCE DISORDER [None]
  - CATARACT OPERATION [None]
  - EYE INFECTION [None]
  - FREQUENT BOWEL MOVEMENTS [None]
  - GALLBLADDER DISORDER [None]
  - OTITIS MEDIA [None]
  - POST PROCEDURAL COMPLICATION [None]
  - SINUS DISORDER [None]
  - TINNITUS [None]
  - VERTIGO [None]
